FAERS Safety Report 4829960-1 (Version None)
Quarter: 2005Q4

REPORT INFORMATION
  Report Type: 
  Country: None (occurrence: None)
  Receive Date: 20051115
  Receipt Date: 20051115
  Transmission Date: 20060501
  Serious: Yes (Hospitalization)
  Sender: FDA-Public Use
  Company Number: None

PATIENT
  Age: 46 Year
  Sex: Male
  Weight: 80 kg

DRUGS (6)
  1. ACETEMINOPHEN [Suspect]
     Indication: EAR PAIN
     Dosage: 2G Q HOUR X 10-12 DOSES
     Dates: start: 20050912
  2. ACETEMINOPHEN [Suspect]
     Indication: EAR PAIN
     Dosage: 2G Q HOUR X 10-12 DOSES
     Dates: start: 20050912
  3. ASPIRIN [Concomitant]
  4. LISINOPRIL [Concomitant]
  5. METFORMIN [Concomitant]
  6. SIMVASTATIN [Concomitant]

REACTIONS (3)
  - ACCIDENTAL OVERDOSE [None]
  - DRUG TOXICITY [None]
  - EAR INFECTION [None]
